FAERS Safety Report 20902729 (Version 1)
Quarter: 2022Q2

REPORT INFORMATION
  Report Type: Spontaneous
  Country: HR (occurrence: HR)
  Receive Date: 20220601
  Receipt Date: 20220601
  Transmission Date: 20220721
  Serious: Yes (Other)
  Sender: FDA-Public Use
  Company Number: HR-BRISTOL-MYERS SQUIBB COMPANY-2022-040075

PATIENT
  Age: 43 Year
  Sex: Male
  Weight: 101 kg

DRUGS (3)
  1. APIXABAN [Suspect]
     Active Substance: APIXABAN
     Indication: Thrombosis prophylaxis
     Dosage: 10 MILLIGRAM, BID (0.5 DAY) FOR 7 DAYS
     Route: 048
     Dates: start: 202105
  2. APIXABAN [Suspect]
     Active Substance: APIXABAN
     Dosage: 2 MILLIGRAM, BID (0.5 DAY)
     Route: 048
     Dates: end: 20210601
  3. PANTOPRAZOLE [Concomitant]
     Active Substance: PANTOPRAZOLE
     Indication: Product used for unknown indication
     Dosage: 40 MILLIGRAM, QD
     Route: 065

REACTIONS (2)
  - Pulmonary fibrosis [Unknown]
  - Microbiology test abnormal [Unknown]

NARRATIVE: CASE EVENT DATE: 20210629
